FAERS Safety Report 13194678 (Version 1)
Quarter: 2017Q1

REPORT INFORMATION
  Report Type: Spontaneous
  Country: US (occurrence: US)
  Receive Date: 20170207
  Receipt Date: 20170207
  Transmission Date: 20170428
  Serious: No
  Sender: FDA-Public Use
  Company Number: US-JAZZ-2016-US-017925

PATIENT
  Age: 74 Year
  Sex: Female

DRUGS (8)
  1. PRIALT [Suspect]
     Active Substance: ZICONOTIDE ACETATE
     Dosage: 0.154 ?G, QH
     Route: 037
     Dates: start: 20151021, end: 20151223
  2. PRIALT [Suspect]
     Active Substance: ZICONOTIDE ACETATE
     Dosage: 0.172 ?G, QH
     Route: 037
     Dates: start: 20151223, end: 20160125
  3. PRIALT [Suspect]
     Active Substance: ZICONOTIDE ACETATE
     Dosage: 0.07 ?G, QH
     Route: 037
     Dates: start: 20160420
  4. INFUMORPH [Suspect]
     Active Substance: MORPHINE SULFATE
     Indication: CHEMOTHERAPY
  5. PRIALT [Suspect]
     Active Substance: ZICONOTIDE ACETATE
     Indication: CHEMOTHERAPY
     Dosage: UNK ?G, QH
     Route: 037
     Dates: end: 20151021
  6. BUPIVACAINE. [Suspect]
     Active Substance: BUPIVACAINE
  7. PRIALT [Suspect]
     Active Substance: ZICONOTIDE ACETATE
     Dosage: UNK ?G, QH
     Route: 037
     Dates: end: 20160304
  8. PRIALT [Suspect]
     Active Substance: ZICONOTIDE ACETATE
     Dosage: 0.05 ?G, QH
     Route: 037
     Dates: start: 20160304, end: 20160420

REACTIONS (4)
  - Hallucination, auditory [Recovered/Resolved]
  - Balance disorder [Recovered/Resolved]
  - Confusional state [Recovered/Resolved]
  - Medical device site pruritus [Recovered/Resolved]

NARRATIVE: CASE EVENT DATE: 20160125
